FAERS Safety Report 25607169 (Version 1)
Quarter: 2025Q3

REPORT INFORMATION
  Report Type: Spontaneous
  Country: US (occurrence: None)
  Receive Date: 20250725
  Receipt Date: 20250725
  Transmission Date: 20251021
  Serious: No
  Sender: FDA-CTU
  Company Number: None

PATIENT
  Age: 28 Year
  Sex: Female
  Weight: 51.75 kg

DRUGS (1)
  1. MONISTAT 7 [Suspect]
     Active Substance: MICONAZOLE NITRATE
     Indication: Fungal infection
     Dosage: FREQUENCY : AT BEDTIME;?
     Route: 067
     Dates: start: 20250724, end: 20250724

REACTIONS (2)
  - Application site pain [None]
  - Application site pain [None]

NARRATIVE: CASE EVENT DATE: 20250724
